FAERS Safety Report 18787332 (Version 2)
Quarter: 2021Q1

REPORT INFORMATION
  Report Type: Spontaneous
  Country: BR (occurrence: BR)
  Receive Date: 20210126
  Receipt Date: 20210306
  Transmission Date: 20210419
  Serious: Yes (Other)
  Sender: FDA-Public Use
  Company Number: NVSC2021BR014705

PATIENT
  Age: 54 Year
  Sex: Female

DRUGS (1)
  1. ULTIBRO [Suspect]
     Active Substance: GLYCOPYRRONIUM\INDACATEROL
     Indication: PRODUCT USED FOR UNKNOWN INDICATION
     Dosage: UNK (0.11/0.05 MG, 3 OR 4 YEARS AGO) (30 CS)
     Route: 065

REACTIONS (4)
  - Asthmatic crisis [Unknown]
  - Product blister packaging issue [Unknown]
  - Product availability issue [Unknown]
  - Product physical issue [Unknown]

NARRATIVE: CASE EVENT DATE: 202010
